FAERS Safety Report 5264003-X (Version None)
Quarter: 2007Q1

REPORT INFORMATION
  Report Type: 
  Country: None (occurrence: None)
  Receive Date: 20070313
  Receipt Date: 20070312
  Transmission Date: 20070707
  Serious: Yes (Other)
  Sender: FDA-Public Use
  Company Number: AT-BRISTOL-MYERS SQUIBB COMPANY-13677414

PATIENT
  Sex: Male

DRUGS (4)
  1. HYDROXYUREA [Suspect]
     Indication: CHRONIC MYELOID LEUKAEMIA
     Dates: start: 20070101, end: 20070208
  2. AGOPTON [Concomitant]
  3. ACECOMB [Concomitant]
     Dosage: DOSAGE FORM = 20 MG LISINOPRIL + 25 MG HCTZ
  4. AVODART [Concomitant]

REACTIONS (1)
  - GUILLAIN-BARRE SYNDROME [None]
